FAERS Safety Report 24117359 (Version 2)
Quarter: 2024Q3

REPORT INFORMATION
  Report Type: Spontaneous
  Country: NL (occurrence: NL)
  Receive Date: 20240722
  Receipt Date: 20240731
  Transmission Date: 20241016
  Serious: Yes (Other)
  Sender: NOVO NORDISK
  Company Number: None

PATIENT
  Age: 75 Year
  Sex: Male
  Weight: 88.7 kg

DRUGS (3)
  1. DAPAGLIFLOZIN [Suspect]
     Active Substance: DAPAGLIFLOZIN
     Indication: Type 2 diabetes mellitus
     Dosage: TABLET, 10 MG (MILLIGRAM),
     Dates: start: 20240521, end: 20240607
  2. DAPAGLIFLOZIN [Suspect]
     Active Substance: DAPAGLIFLOZIN
     Indication: Chronic kidney disease
  3. RYBELSUS [Suspect]
     Active Substance: SEMAGLUTIDE
     Indication: Type 2 diabetes mellitus
     Dosage: TABLET, 3 MG (MILLIGRAM),
     Dates: start: 20240521, end: 20240610

REACTIONS (5)
  - Suicidal ideation [Recovered/Resolved]
  - Neck pain [Recovered/Resolved]
  - General physical health deterioration [Recovered/Resolved]
  - Headache [Recovered/Resolved]
  - Eructation [Recovered/Resolved]
